FAERS Safety Report 5295523-X (Version None)
Quarter: 2007Q2

REPORT INFORMATION
  Report Type: 
  Country: None (occurrence: None)
  Receive Date: 20070406
  Receipt Date: 20070321
  Transmission Date: 20071010
  Serious: Yes (Hospitalization)
  Sender: FDA-Public Use
  Company Number: 07-0027TG

PATIENT
  Age: 66 Year
  Sex: Female

DRUGS (2)
  1. FENOFIBRATE [Suspect]
     Indication: BILIARY CIRRHOSIS
     Dosage: 150MG, QD
  2. URSODEOXYCHOLIC ACID (UDCA) 600MG [Concomitant]

REACTIONS (7)
  - ANOREXIA [None]
  - ANTIBODY TEST POSITIVE [None]
  - BLOOD IMMUNOGLOBULIN M INCREASED [None]
  - EOSINOPHIL COUNT INCREASED [None]
  - HEPATOCELLULAR DAMAGE [None]
  - LYMPHOCYTE STIMULATION TEST POSITIVE [None]
  - PYREXIA [None]
